FAERS Safety Report 23232137 (Version 7)
Quarter: 2025Q2

REPORT INFORMATION
  Report Type: Report from Study
  Country: US (occurrence: US)
  Receive Date: 20231127
  Receipt Date: 20250505
  Transmission Date: 20250716
  Serious: Yes (Other)
  Sender: TAKEDA
  Company Number: US-TAKEDA-2023TUS112935

PATIENT
  Sex: Female

DRUGS (33)
  1. IXAZOMIB [Suspect]
     Active Substance: IXAZOMIB
     Indication: Plasma cell myeloma
  2. IXAZOMIB [Suspect]
     Active Substance: IXAZOMIB
  3. IXAZOMIB [Suspect]
     Active Substance: IXAZOMIB
  4. IXAZOMIB [Suspect]
     Active Substance: IXAZOMIB
  5. PEPCID [Concomitant]
     Active Substance: FAMOTIDINE
  6. SYSTANE BALANCE [Concomitant]
     Active Substance: PROPYLENE GLYCOL
  7. MOMETASONE FUROATE [Concomitant]
     Active Substance: MOMETASONE FUROATE
  8. PLAQUENIL [Concomitant]
     Active Substance: HYDROXYCHLOROQUINE SULFATE
  9. RESTASIS [Concomitant]
     Active Substance: CYCLOSPORINE
  10. ASPIRIN [Concomitant]
     Active Substance: ASPIRIN
  11. CALCIUM [Concomitant]
     Active Substance: CALCIUM
  12. ZETIA [Concomitant]
     Active Substance: EZETIMIBE
  13. DEXAMETHASONE [Concomitant]
     Active Substance: DEXAMETHASONE
  14. TYLENOL [Concomitant]
     Active Substance: ACETAMINOPHEN
  15. AMLODIPINE [Concomitant]
     Active Substance: AMLODIPINE BESYLATE
  16. LORATADINE [Concomitant]
     Active Substance: LORATADINE
  17. ACYCLOVIR [Concomitant]
     Active Substance: ACYCLOVIR
  18. VITAMIN D [Concomitant]
     Active Substance: VITAMIN D NOS
  19. REVLIMID [Concomitant]
     Active Substance: LENALIDOMIDE
  20. ALLEGRA ALLERGY [Concomitant]
     Active Substance: FEXOFENADINE HYDROCHLORIDE
  21. AMLODIPINE BESYLATE [Concomitant]
     Active Substance: AMLODIPINE BESYLATE
  22. AZELASTINE HYDROCHLORIDE\FLUTICASONE PROPIONATE [Concomitant]
     Active Substance: AZELASTINE HYDROCHLORIDE\FLUTICASONE PROPIONATE
  23. KENALOG [Concomitant]
     Active Substance: TRIAMCINOLONE ACETONIDE
  24. TROSPIUM CHLORIDE [Concomitant]
     Active Substance: TROSPIUM CHLORIDE
  25. VITAMIN D3 [Concomitant]
     Active Substance: CHOLECALCIFEROL
  26. OMEPRAZOLE [Concomitant]
     Active Substance: OMEPRAZOLE
  27. VITAMIN B12 [Concomitant]
     Active Substance: CYANOCOBALAMIN
  28. CYCLOSPORINE [Concomitant]
     Active Substance: CYCLOSPORINE
  29. MONTELUKAST SODIUM [Concomitant]
     Active Substance: MONTELUKAST SODIUM
  30. EZETIMIBE [Concomitant]
     Active Substance: EZETIMIBE
  31. IPRATROPIUM BROMIDE [Concomitant]
     Active Substance: IPRATROPIUM BROMIDE
  32. FEXOFENADINE HYDROCHLORIDE [Concomitant]
     Active Substance: FEXOFENADINE HYDROCHLORIDE
  33. AZELASTINE HYDROCHLORIDE [Concomitant]
     Active Substance: AZELASTINE HYDROCHLORIDE

REACTIONS (8)
  - Respiratory syncytial virus infection [Unknown]
  - Full blood count abnormal [Unknown]
  - Sinusitis [Not Recovered/Not Resolved]
  - Visual impairment [Unknown]
  - White blood cell count decreased [Unknown]
  - Fatigue [Unknown]
  - Platelet count decreased [Unknown]
  - Diarrhoea [Not Recovered/Not Resolved]
